FAERS Safety Report 13917852 (Version 2)
Quarter: 2022Q3

REPORT INFORMATION
  Report Type: Spontaneous
  Country: US (occurrence: US)
  Receive Date: 20170829
  Receipt Date: 20220817
  Transmission Date: 20221027
  Serious: Yes (Other)
  Sender: FDA-Public Use
  Company Number: US-PFIZER INC-2017369555

PATIENT
  Age: 48 Year
  Sex: Male
  Weight: 104.33 kg

DRUGS (9)
  1. GABAPENTIN [Suspect]
     Active Substance: GABAPENTIN
     Indication: Pain
     Dosage: 600 MG, 3X/DAY
     Dates: end: 20170801
  2. GABAPENTIN [Suspect]
     Active Substance: GABAPENTIN
     Indication: Nerve injury
     Dosage: 1800 MG
     Dates: start: 2015, end: 2021
  3. GABAPENTIN [Suspect]
     Active Substance: GABAPENTIN
     Dosage: 300 MG
     Dates: start: 2015, end: 2021
  4. MORPHINE [Concomitant]
     Active Substance: MORPHINE
     Dosage: 30 MG, 2X/DAY
     Dates: start: 2014
  5. OXYCODONE [Concomitant]
     Active Substance: OXYCODONE
     Dosage: 10 MG, 3X/DAY
     Dates: start: 2014
  6. CYCLOBENZAPRINE [Concomitant]
     Active Substance: CYCLOBENZAPRINE
     Dosage: 10 MG
     Dates: start: 2014
  7. CELECOXIB [Concomitant]
     Active Substance: CELECOXIB
     Dosage: 40 MG, DAILY
     Dates: start: 2014
  8. AMBIEN [Concomitant]
     Active Substance: ZOLPIDEM TARTRATE
     Dosage: 10 MG, 1X/DAY (NIGHTLY)
     Dates: start: 2014
  9. PYRAZINAMIDE [Concomitant]
     Active Substance: PYRAZINAMIDE

REACTIONS (9)
  - Suicidal ideation [Unknown]
  - Depressed level of consciousness [Unknown]
  - Thinking abnormal [Unknown]
  - Alopecia [Unknown]
  - Feeling abnormal [Unknown]
  - Depression [Unknown]
  - Fear [Unknown]
  - Drug ineffective for unapproved indication [Unknown]
  - Off label use [Unknown]

NARRATIVE: CASE EVENT DATE: 20150125
